FAERS Safety Report 7272772-2 (Version None)
Quarter: 2011Q1

REPORT INFORMATION
  Report Type: 
  Country: None (occurrence: None)
  Receive Date: 20110203
  Receipt Date: 20110202
  Transmission Date: 20110831
  Serious: Yes (Life-Threatening, Hospitalization)
  Sender: FDA-Public Use
  Company Number: CZ-EISAI INC-E2080-00375-SPO-CZ

PATIENT
  Sex: Male
  Weight: 31 kg

DRUGS (8)
  1. DITHIADEN [Concomitant]
     Route: 040
     Dates: start: 20110128
  2. HERPESIN [Concomitant]
     Indication: APHTHOUS STOMATITIS
     Route: 040
     Dates: start: 20110129
  3. CEFAZOLIN [Concomitant]
     Indication: INFLAMMATION
     Route: 042
     Dates: start: 20110129
  4. INOVELON [Suspect]
     Indication: EPILEPSY
     Route: 048
     Dates: start: 20110113
  5. FRISIUM [Suspect]
     Indication: EPILEPSY
     Route: 048
     Dates: start: 20110113, end: 20110130
  6. KEPPRA [Concomitant]
     Indication: EPILEPSY
     Route: 048
     Dates: start: 20110112
  7. SOLU-MEDROL [Concomitant]
     Route: 040
     Dates: start: 20110130
  8. ORFIRIL [Concomitant]
     Route: 048
     Dates: start: 20100112

REACTIONS (1)
  - STEVENS-JOHNSON SYNDROME [None]
